FAERS Safety Report 6573612-7 (Version None)
Quarter: 2010Q1

REPORT INFORMATION
  Report Type: 
  Country: None (occurrence: None)
  Receive Date: 20100208
  Receipt Date: 20100128
  Transmission Date: 20100710
  Serious: Yes (Hospitalization, Disabling)
  Sender: FDA-Public Use
  Company Number: GB-WYE-G04747209

PATIENT
  Sex: Male
  Weight: 80 kg

DRUGS (5)
  1. LANSOPRAZOLE [Suspect]
     Dosage: UNKNOWN
  2. RABEPRAZOLE SODIUM [Suspect]
     Dosage: UNKNOWN
  3. PANTOPRAZOLE [Suspect]
     Indication: GASTROOESOPHAGEAL REFLUX DISEASE
     Dosage: UNKNOWN
  4. LOSEC [Suspect]
     Indication: GASTROOESOPHAGEAL REFLUX DISEASE
     Dosage: UNKNOWN
     Route: 048
     Dates: start: 20050101, end: 20050501
  5. OMEPRAZOLE [Suspect]
     Dosage: UNKNOWN
     Route: 048
     Dates: start: 20050505, end: 20050527

REACTIONS (4)
  - HYPERPARATHYROIDISM SECONDARY [None]
  - HYPOCALCAEMIA [None]
  - HYPOMAGNESAEMIA [None]
  - TETANUS [None]
